FAERS Safety Report 18660947 (Version 1)
Quarter: 2020Q4

REPORT INFORMATION
  Report Type: Other
  Country: GB (occurrence: GB)
  Receive Date: 20201224
  Receipt Date: 20201224
  Transmission Date: 20210114
  Serious: Yes (Disabling, Other)
  Sender: FDA-Public Use
  Company Number: GB-STRIDES ARCOLAB LIMITED-2020SP015841

PATIENT
  Age: 24 Year
  Sex: Female
  Weight: 63.5 kg

DRUGS (3)
  1. EUMOVATE [Suspect]
     Active Substance: CLOBETASONE BUTYRATE
     Indication: ECZEMA
     Dosage: TAKEN FREQUENTLY OVER A NUMBER OF YEARS
     Route: 061
  2. BETNOVATE-Q [Suspect]
     Active Substance: BETAMETHASONE VALERATE\CLIOQUINOL
     Indication: ECZEMA
     Dosage: USED OVER A NUMBER OF YEARS FOR DIAGNOSED ECZEMA
     Route: 061
  3. HYDROCORTISONE. [Suspect]
     Active Substance: HYDROCORTISONE
     Indication: ECZEMA
     Dosage: USED FREQUENTLY OVER A LONG PERIOD OF TIME (YEARS) FOR DIAGNOSED ECZEMA (CREAM)
     Route: 061

REACTIONS (22)
  - Neuralgia [Recovered/Resolved]
  - Night sweats [Recovered/Resolved]
  - Social anxiety disorder [Not Recovered/Not Resolved]
  - Steroid withdrawal syndrome [Not Recovered/Not Resolved]
  - Skin hyperpigmentation [Recovered/Resolved]
  - Insomnia [Recovered/Resolved]
  - Psychiatric symptom [Not Recovered/Not Resolved]
  - Abnormal weight gain [Not Recovered/Not Resolved]
  - Depression [Not Recovered/Not Resolved]
  - Visual acuity reduced [Recovered/Resolved]
  - Alopecia [Recovered/Resolved]
  - Impaired healing [Not Recovered/Not Resolved]
  - Product monitoring error [Unknown]
  - Pruritus [Recovered/Resolved]
  - Elephantiasis [Not Recovered/Not Resolved]
  - Skin weeping [Not Recovered/Not Resolved]
  - Skin exfoliation [Not Recovered/Not Resolved]
  - Adrenal disorder [Not Recovered/Not Resolved]
  - Temperature regulation disorder [Recovered/Resolved]
  - Post-traumatic stress disorder [Not Recovered/Not Resolved]
  - Skin burning sensation [Not Recovered/Not Resolved]
  - Erythema [Not Recovered/Not Resolved]

NARRATIVE: CASE EVENT DATE: 2014
